FAERS Safety Report 7295131 (Version 2)
Quarter: 2013Q3

REPORT INFORMATION
  Report Type: Spontaneous
  Country: None (occurrence: None)
  Receive Date: 20100205
  Receipt Date: 20130708
  Transmission Date: 20140515
  Serious: Yes (Congenital Anomaly, Other)
  Sender: FDA-Public Use
  Company Number: AUR-APL-2010-00192

PATIENT
  Sex: Female

DRUGS (1)
  1. CITALOPRAM (CITALOPRAM) [Suspect]
     Indication: DEPRESSION
     Dosage: IN-UTERO EXPOSURE

REACTIONS (6)
  - Poor sucking reflex [None]
  - Restlessness [None]
  - Enlarged clitoris [None]
  - Neonatal disorder [None]
  - Maternal drugs affecting foetus [None]
  - Priapism [None]
